FAERS Safety Report 15999873 (Version 2)
Quarter: 2019Q1

REPORT INFORMATION
  Report Type: Spontaneous
  Country: US (occurrence: US)
  Receive Date: 20190225
  Receipt Date: 20190313
  Transmission Date: 20190418
  Serious: Yes (Life-Threatening, Hospitalization, Other)
  Sender: FDA-Public Use
  Company Number: US-PFIZER INC-2019080270

PATIENT
  Age: 11 Year
  Sex: Female

DRUGS (2)
  1. MAGNESIUM SULFATE. [Suspect]
     Active Substance: MAGNESIUM SULFATE
     Indication: ENTERITIS INFECTIOUS
     Dosage: UNK (2 OUNCES OF SATURATED SOLUTION)
     Route: 048
     Dates: start: 19200408
  2. MAGNESIUM SULFATE. [Suspect]
     Active Substance: MAGNESIUM SULFATE
     Dosage: UNK (AT 12 NOON 1 1/2 OUNCES OF SATURATED SOLUTION, SECOND DOSE)
     Route: 048
     Dates: start: 19200408

REACTIONS (2)
  - Poisoning [Recovered/Resolved]
  - Incorrect dose administered [Recovered/Resolved]

NARRATIVE: CASE EVENT DATE: 192004
